FAERS Safety Report 6865030-9 (Version None)
Quarter: 2010Q3

REPORT INFORMATION
  Report Type: 
  Country: None (occurrence: None)
  Receive Date: 20100721
  Receipt Date: 20080410
  Transmission Date: 20110219
  Serious: No
  Sender: FDA-Public Use
  Company Number: US-PFIZER INC-2008033685

PATIENT
  Sex: Female
  Weight: 50.9 kg

DRUGS (1)
  1. CHANTIX [Suspect]
     Dates: start: 20080404

REACTIONS (7)
  - ANXIETY [None]
  - CRYING [None]
  - INCORRECT DOSE ADMINISTERED [None]
  - INSOMNIA [None]
  - NERVOUSNESS [None]
  - NIGHTMARE [None]
  - TREMOR [None]
